FAERS Safety Report 22350577 (Version 1)
Quarter: 2023Q2

REPORT INFORMATION
  Report Type: Report from Study
  Country: CA (occurrence: CA)
  Receive Date: 20230522
  Receipt Date: 20230522
  Transmission Date: 20230721
  Serious: Yes (Other)
  Sender: FDA-Public Use
  Company Number: CA-TAKEDA-2023TUS046153

PATIENT
  Age: 18 Year
  Sex: Female

DRUGS (3)
  1. VEDOLIZUMAB [Suspect]
     Active Substance: VEDOLIZUMAB
     Indication: Colitis ulcerative
     Dosage: 300 MILLIGRAM
     Route: 042
     Dates: start: 20230427
  2. MESALAMINE [Concomitant]
     Active Substance: MESALAMINE
     Dosage: 4800 MILLIGRAM
     Dates: start: 20191230
  3. Salofalk [Concomitant]
     Dosage: UNK

REACTIONS (5)
  - Pneumonia [Not Recovered/Not Resolved]
  - Breast pain [Unknown]
  - Polymenorrhoea [Unknown]
  - Rhinorrhoea [Unknown]
  - Headache [Unknown]
